FAERS Safety Report 19244991 (Version 3)
Quarter: 2021Q3

REPORT INFORMATION
  Report Type: Spontaneous
  Country: IN (occurrence: IN)
  Receive Date: 20210511
  Receipt Date: 20210714
  Transmission Date: 20211014
  Serious: Yes (Hospitalization, Other)
  Sender: FDA-Public Use
  Company Number: IN-PFIZER INC-2021117258

PATIENT
  Age: 64 Year
  Sex: Female

DRUGS (8)
  1. SHELCAL [CALCIUM;COLECALCIFEROL] [Concomitant]
     Active Substance: CALCIUM\CHOLECALCIFEROL
     Dosage: 120 MG, 1X/DAY
  2. ZOLEDRONATE [Concomitant]
     Active Substance: ZOLEDRONIC ACID
     Dosage: 4 MG, CYCLIC: IN 100NS OVER 1 HOUR
  3. PALBACE [Suspect]
     Active Substance: PALBOCICLIB
     Dosage: 100 MG
  4. PALBACE [Suspect]
     Active Substance: PALBOCICLIB
     Dosage: 75 MG, CYCLIC: ONCE A DAY, X 3WEEKS THEN 1WEEK OFF
  5. LETROZOLE. [Concomitant]
     Active Substance: LETROZOLE
     Dosage: 2.5 MG, 1X/DAY
  6. AROMASIN [Concomitant]
     Active Substance: EXEMESTANE
  7. PALBACE [Suspect]
     Active Substance: PALBOCICLIB
     Dosage: 125 MG, CYCLIC: ONCE A DAY, X 3WEEKS THEN 1WEEK OFF
     Route: 048
     Dates: start: 20200917, end: 20210309
  8. PALBACE [Suspect]
     Active Substance: PALBOCICLIB
     Indication: BREAST CANCER METASTATIC
     Dosage: 125 MG, 1X/DAY
     Route: 048
     Dates: start: 20190809

REACTIONS (8)
  - Cough [Unknown]
  - Malaise [Unknown]
  - Rash [Unknown]
  - Neoplasm progression [Unknown]
  - Dry skin [Unknown]
  - COVID-19 [Unknown]
  - Unevaluable event [Unknown]
  - Skin exfoliation [Unknown]
